FAERS Safety Report 17133165 (Version 1)
Quarter: 2019Q4

REPORT INFORMATION
  Report Type: Spontaneous
  Country: US (occurrence: US)
  Receive Date: 20191210
  Receipt Date: 20191210
  Transmission Date: 20200122
  Serious: Yes (Hospitalization, Other)
  Sender: FDA-Public Use
  Company Number: US-DRREDDYS-USA/USA/19/0117033

PATIENT
  Sex: Male

DRUGS (8)
  1. PYRIDOXINE [Suspect]
     Active Substance: PYRIDOXINE
     Indication: SEIZURE
  2. SIROLIMUS. [Suspect]
     Active Substance: SIROLIMUS
     Dosage: SIROLIMUS WAS INCREASED TO 0.8 MG/M2 PER DAY.
  3. PHENYTOIN. [Suspect]
     Active Substance: PHENYTOIN
     Indication: SEIZURE
  4. SIROLIMUS. [Suspect]
     Active Substance: SIROLIMUS
     Indication: EPILEPSY
     Dosage: 0.8 MG/M2 FOR THREE DAYS EVERY WEEK
  5. VIGABATRIN. [Suspect]
     Active Substance: VIGABATRIN
     Dosage: TITRATING TO 150 MG/KG DAILY WITH IMPROVEMENT
  6. VIGABATRIN. [Suspect]
     Active Substance: VIGABATRIN
     Indication: SEIZURE
     Dosage: 50 MG/KG DAILY
  7. ACTH [Suspect]
     Active Substance: CORTICOTROPIN
     Indication: SEIZURE
     Dosage: 150 UNITS/M2
  8. LEVETIRACETAM. [Suspect]
     Active Substance: LEVETIRACETAM
     Indication: SEIZURE
     Route: 048

REACTIONS (5)
  - Eczema [Unknown]
  - Dermatitis diaper [Unknown]
  - Upper respiratory tract infection [Unknown]
  - Product use in unapproved indication [Unknown]
  - Drug ineffective [Unknown]
